FAERS Safety Report 21717278 (Version 1)
Quarter: 2022Q4

REPORT INFORMATION
  Report Type: Spontaneous
  Country: FR (occurrence: FR)
  Receive Date: 20221212
  Receipt Date: 20221212
  Transmission Date: 20230113
  Serious: Yes (Death)
  Sender: FDA-Public Use
  Company Number: FR-BAXTER-2022BAX026208

PATIENT
  Age: 54 Year
  Sex: Male

DRUGS (3)
  1. DEXAMETHASONE [Suspect]
     Active Substance: DEXAMETHASONE
     Indication: Product used for unknown indication
     Dosage: 40 MG/DOSE, (TREATMENT LINE NUMBER 4, DURATION: 0.1 MONTHS)
     Route: 065
     Dates: end: 20190519
  2. BORTEZOMIB [Suspect]
     Active Substance: BORTEZOMIB
     Indication: Product used for unknown indication
     Dosage: 1.3 MG/M2/DOSE, (TREATMENT LINE NUMBER 4, DURATION: 0.1 MONTHS)
     Route: 065
     Dates: end: 20190519
  3. CYCLOPHOSPHAMIDE [Suspect]
     Active Substance: CYCLOPHOSPHAMIDE
     Indication: Product used for unknown indication
     Dosage: (TREATMENT LINE NUMBER 4, DURATION: 0.1 MONTHS)
     Route: 065
     Dates: end: 20190519

REACTIONS (1)
  - Disease progression [Fatal]
